FAERS Safety Report 7238867-4 (Version None)
Quarter: 2011Q1

REPORT INFORMATION
  Report Type: 
  Country: None (occurrence: None)
  Receive Date: 20110121
  Receipt Date: 20110117
  Transmission Date: 20110831
  Serious: Yes (Death)
  Sender: FDA-Public Use
  Company Number: PHHY2010JP57839

PATIENT
  Sex: Male

DRUGS (14)
  1. SHAKUYAKUKANZOUBUSHITOU [Concomitant]
     Dosage: 2.5 G, UNK
     Route: 048
     Dates: start: 20080101, end: 20100701
  2. AFINITOR [Suspect]
     Indication: METASTATIC RENAL CELL CARCINOMA
     Dosage: 5 MG, QD
     Route: 048
     Dates: start: 20100526, end: 20100607
  3. PURSENNID [Concomitant]
     Dosage: 24 MG, UNK
     Route: 048
     Dates: start: 20080101, end: 20100701
  4. HICEE [Concomitant]
     Dosage: 2.4 MG, UNK
     Route: 048
     Dates: start: 20080101, end: 20100701
  5. PODONIN [Concomitant]
     Dosage: 2 G, UNK
     Route: 048
     Dates: start: 20080101, end: 20100701
  6. FERROUS CITRATE [Concomitant]
     Dosage: 50 MG, UNK
     Route: 048
     Dates: start: 20080101, end: 20100701
  7. INTERFERON ALFA [Concomitant]
     Indication: METASTATIC RENAL CELL CARCINOMA
     Dosage: 3000000 IU, UNK
     Dates: start: 20080602, end: 20091120
  8. OXYCONTIN [Concomitant]
     Dosage: 30 MG, UNK
     Route: 048
     Dates: start: 20100519, end: 20100701
  9. AFINITOR [Suspect]
     Dosage: 5 MG, DAILY
     Route: 048
     Dates: start: 20100608, end: 20100701
  10. GASTER [Concomitant]
     Dosage: 10 MG, UNK
     Route: 048
     Dates: start: 20080101, end: 20100701
  11. RENAGEL [Concomitant]
     Dosage: 4750 MG, UNK
     Route: 048
     Dates: start: 20080101, end: 20100701
  12. MOBIC [Concomitant]
     Dosage: 10 MG, UNK
     Route: 048
     Dates: start: 20080101, end: 20100701
  13. AMOBAN [Concomitant]
     Dosage: 7.5 MG, UNK
     Route: 048
     Dates: start: 20080101, end: 20100701
  14. PREDONINE [Concomitant]
     Dosage: 5 MG, UNK
     Route: 048
     Dates: start: 20080101, end: 20100701

REACTIONS (6)
  - NEOPLASM MALIGNANT [None]
  - ANAEMIA [None]
  - SEPTIC SHOCK [None]
  - GENERAL PHYSICAL HEALTH DETERIORATION [None]
  - PLATELET COUNT DECREASED [None]
  - PNEUMONIA BACTERIAL [None]
